FAERS Safety Report 7482691-4 (Version None)
Quarter: 2011Q2

REPORT INFORMATION
  Report Type: 
  Country: None (occurrence: None)
  Receive Date: 20110516
  Receipt Date: 20110511
  Transmission Date: 20111010
  Serious: Yes (Life-Threatening, Hospitalization, Other)
  Sender: FDA-Public Use
  Company Number: FR-BRISTOL-MYERS SQUIBB COMPANY-15729957

PATIENT
  Age: 79 Year
  Sex: Male

DRUGS (15)
  1. CALCIPARINE [Suspect]
     Dosage: 0.4ML ON 19APR AND 20APR10 0.25ML ON 21APR10(3/D) 0.15ML ON 22APR10(3/D)
     Route: 058
     Dates: start: 20100419
  2. RILMENIDINE [Concomitant]
  3. LYSANXIA [Concomitant]
  4. BISOPROLOL FUMARATE [Concomitant]
  5. OMEPRAZOLE [Concomitant]
  6. PRAVASTATIN [Concomitant]
  7. ACETAMINOPHEN [Concomitant]
  8. ZOPICLONE [Concomitant]
  9. LOXEN LP [Concomitant]
     Dosage: LP  2/D
  10. PAROXETINE HCL [Concomitant]
  11. LANTUS [Concomitant]
     Dosage: 1DF=25 UNITS
  12. TRAMADOL HYDROCHLORIDE [Concomitant]
  13. TORENTAL [Concomitant]
  14. COUMADIN [Suspect]
     Route: 048
     Dates: end: 20100414
  15. LASIX [Concomitant]

REACTIONS (6)
  - QUADRIPLEGIA [None]
  - ARTERITIS [None]
  - HAEMATURIA [None]
  - EXTRADURAL HAEMATOMA [None]
  - BACTERAEMIA [None]
  - EXTREMITY NECROSIS [None]
